FAERS Safety Report 8404935-4 (Version None)
Quarter: 2012Q2

REPORT INFORMATION
  Report Type: 
  Country: None (occurrence: None)
  Receive Date: 20120601
  Receipt Date: 20120514
  Transmission Date: 20120825
  Serious: No
  Sender: FDA-Public Use
  Company Number: US-ASTRAZENECA-2012SE31227

PATIENT
  Age: 70 Year
  Sex: Male

DRUGS (2)
  1. NEXIUM [Suspect]
     Route: 048
  2. OMEPRAZOLE [Suspect]
     Route: 048

REACTIONS (5)
  - ORAL PAIN [None]
  - OEDEMA MOUTH [None]
  - DRUG HYPERSENSITIVITY [None]
  - APHTHOUS STOMATITIS [None]
  - INTENTIONAL DRUG MISUSE [None]
